FAERS Safety Report 4270997-1 (Version None)
Quarter: 2004Q1

REPORT INFORMATION
  Report Type: 
  Country: None (occurrence: None)
  Receive Date: 20040114
  Receipt Date: 20040112
  Transmission Date: 20041129
  Serious: Yes (Other)
  Sender: FDA-Public Use
  Company Number: WAES 0401USA00826

PATIENT

DRUGS (3)
  1. [THERAPY UNSPECIFIED] [Concomitant]
  2. LOVENOX [Concomitant]
  3. INVANZ [Suspect]
     Route: 042

REACTIONS (1)
  - APLASTIC ANAEMIA [None]
